FAERS Safety Report 4962043-9 (Version None)
Quarter: 2006Q2

REPORT INFORMATION
  Report Type: 
  Country: None (occurrence: None)
  Receive Date: 20060404
  Receipt Date: 20050829
  Transmission Date: 20061013
  Serious: Yes (Hospitalization, Other)
  Sender: FDA-Public Use
  Company Number: US-MERCK-0508USA04625

PATIENT
  Age: 72 Year
  Sex: Female
  Weight: 78 kg

DRUGS (1)
  1. VIOXX [Suspect]
     Indication: ROTATOR CUFF SYNDROME
     Route: 048
     Dates: start: 20040101, end: 20040701

REACTIONS (3)
  - CEREBROVASCULAR ACCIDENT [None]
  - FAECES DISCOLOURED [None]
  - HYPOAESTHESIA [None]
